FAERS Safety Report 7001035-5 (Version None)
Quarter: 2010Q3

REPORT INFORMATION
  Report Type: 
  Country: None (occurrence: None)
  Receive Date: 20100920
  Receipt Date: 20070521
  Transmission Date: 20110219
  Serious: Yes (Other)
  Sender: FDA-Public Use
  Company Number: US-ASTRAZENECA-2006UW12033

PATIENT
  Age: 23851 Day
  Sex: Male
  Weight: 106.6 kg

DRUGS (8)
  1. SEROQUEL [Suspect]
     Indication: DEPRESSION
     Route: 048
     Dates: start: 20050101, end: 20060101
  2. SEROQUEL [Suspect]
     Dosage: DAILY
     Route: 048
     Dates: start: 20060131, end: 20060221
  3. ZYPREXA [Suspect]
     Dates: start: 20000101
  4. RISPERDAL [Concomitant]
  5. CLINORIL [Concomitant]
     Indication: MUSCULOSKELETAL PAIN
     Route: 048
     Dates: start: 20011024
  6. VOLTAREN [Concomitant]
     Indication: MUSCULOSKELETAL PAIN
     Dosage: 50-150 MG
     Dates: start: 20010905
  7. WELLBUTRIN [Concomitant]
     Indication: ANXIETY
     Dosage: 100-200 MG
     Dates: start: 20051107, end: 20060221
  8. NICOTROL [Concomitant]

REACTIONS (4)
  - BLOOD GLUCOSE INCREASED [None]
  - DIABETES MELLITUS [None]
  - DIABETES MELLITUS INADEQUATE CONTROL [None]
  - PANCREATITIS [None]
